FAERS Safety Report 15779520 (Version 4)
Quarter: 2025Q3

REPORT INFORMATION
  Report Type: Spontaneous
  Country: CA (occurrence: CA)
  Receive Date: 20190101
  Receipt Date: 20250813
  Transmission Date: 20251020
  Serious: Yes (Hospitalization, Other)
  Sender: ALKEM
  Company Number: None

PATIENT
  Age: 13 Year
  Sex: Male

DRUGS (11)
  1. MYCOPHENOLATE MOFETIL [Suspect]
     Active Substance: MYCOPHENOLATE MOFETIL
     Indication: Immunosuppressant drug therapy
     Route: 065
  2. MYCOPHENOLATE MOFETIL [Suspect]
     Active Substance: MYCOPHENOLATE MOFETIL
     Route: 065
  3. SIROLIMUS [Suspect]
     Active Substance: SIROLIMUS
     Indication: Immunosuppressant drug therapy
     Route: 048
  4. TACROLIMUS [Suspect]
     Active Substance: TACROLIMUS
     Indication: Immunosuppressant drug therapy
     Route: 065
  5. TACROLIMUS [Suspect]
     Active Substance: TACROLIMUS
     Route: 065
  6. TACROLIMUS [Suspect]
     Active Substance: TACROLIMUS
     Route: 065
  7. METHYLPREDNISOLONE [Suspect]
     Active Substance: METHYLPREDNISOLONE
     Indication: Immunosuppressant drug therapy
     Route: 042
  8. METHYLPREDNISOLONE [Suspect]
     Active Substance: METHYLPREDNISOLONE
     Indication: Kidney transplant rejection
  9. PREDNISONE [Suspect]
     Active Substance: PREDNISONE
     Indication: Immunosuppressant drug therapy
     Dosage: 5 MILLIGRAM/SQ. METER, QD
     Route: 048
  10. PREDNISONE [Suspect]
     Active Substance: PREDNISONE
     Route: 065
  11. PREDNISONE [Suspect]
     Active Substance: PREDNISONE
     Route: 048

REACTIONS (4)
  - Fatigue [Recovered/Resolved]
  - Gastroenteritis norovirus [Recovered/Resolved]
  - Kidney transplant rejection [Unknown]
  - Mouth ulceration [Unknown]
